FAERS Safety Report 5232979-2 (Version None)
Quarter: 2007Q1

REPORT INFORMATION
  Report Type: 
  Country: None (occurrence: None)
  Receive Date: 20061204
  Receipt Date: 20061018
  Transmission Date: 20070707
  Serious: No
  Sender: FDA-Public Use
  Company Number: 2006-BP-11669BP

PATIENT
  Age: 65 Year
  Sex: Female
  Weight: 48.08 kg

DRUGS (9)
  1. SPIRIVA [Suspect]
     Indication: CHRONIC OBSTRUCTIVE PULMONARY DISEASE
     Dosage: 18 MCG (18 MCG,1 IN 1 D),IH
     Route: 055
     Dates: start: 20060911, end: 20061009
  2. SPIRIVA [Suspect]
     Indication: EMPHYSEMA
     Dosage: 18 MCG (18 MCG,1 IN 1 D),IH
     Route: 055
     Dates: start: 20060911, end: 20061009
  3. ALBUTEROL MDI (SALBUTAMOL) [Concomitant]
  4. OXYGEN (OXYGEN) [Concomitant]
  5. CARDIZEM [Concomitant]
  6. ELAVIL [Concomitant]
  7. DILTIAZEM [Concomitant]
  8. AMITRIPTYLINE HCL [Concomitant]
  9. COMBIVENT (COMBIVENT /01261001/) [Concomitant]

REACTIONS (5)
  - BLOOD PRESSURE INCREASED [None]
  - CONSTIPATION [None]
  - GENERALISED ERYTHEMA [None]
  - HYPERSENSITIVITY [None]
  - TINNITUS [None]
